FAERS Safety Report 8172555 (Version 4)
Quarter: 2013Q2

REPORT INFORMATION
  Report Type: Report from Study
  Country: FR (occurrence: FR)
  Receive Date: 20111007
  Receipt Date: 20130417
  Transmission Date: 20140414
  Serious: Yes (Hospitalization, Other)
  Sender: FDA-Public Use
  Company Number: FR-JNJFOC-20110902450

PATIENT
  Age: 60 Year
  Sex: Male
  Weight: 67 kg

DRUGS (15)
  1. REMICADE [Suspect]
     Indication: COLITIS ULCERATIVE
     Route: 042
     Dates: start: 20100224
  2. REMICADE [Suspect]
     Indication: COLITIS ULCERATIVE
     Route: 042
     Dates: start: 201007
  3. REMICADE [Suspect]
     Indication: COLITIS ULCERATIVE
     Route: 042
     Dates: start: 201102
  4. IMUREL [Suspect]
     Indication: COLITIS ULCERATIVE
     Dates: start: 200906, end: 201006
  5. IMUREL [Suspect]
     Indication: COLITIS ULCERATIVE
     Dates: start: 2004
  6. FUNGIZONE [Concomitant]
     Indication: ANTIBIOTIC THERAPY
     Route: 048
     Dates: start: 20110603, end: 20110621
  7. SECTRAL [Concomitant]
     Indication: HYPERTENSION
     Route: 048
  8. ADANCOR [Concomitant]
     Indication: ISCHAEMIC HEART DISEASE PROPHYLAXIS
     Route: 048
  9. TAHOR [Concomitant]
     Indication: HYPERCHOLESTEROLAEMIA
     Route: 048
  10. SPASFON [Concomitant]
     Indication: ABDOMINAL PAIN
     Route: 048
  11. LAROXYL [Concomitant]
     Indication: DEPRESSION
     Route: 048
     Dates: start: 20110603
  12. ROVALCYTE [Concomitant]
     Indication: CYTOMEGALOVIRUS INFECTION
     Route: 048
     Dates: start: 20110603
  13. SOLU-PRED [Concomitant]
     Indication: COLITIS ULCERATIVE
  14. SOLU-PRED [Concomitant]
     Indication: COLITIS ULCERATIVE
  15. SOLU-PRED [Concomitant]
     Indication: COLITIS ULCERATIVE

REACTIONS (4)
  - Weight decreased [Recovered/Resolved]
  - Cytomegalovirus infection [Unknown]
  - Colitis ulcerative [Recovered/Resolved]
  - Anaemia [Unknown]
